FAERS Safety Report 21634972 (Version 1)
Quarter: 2022Q4

REPORT INFORMATION
  Report Type: Spontaneous
  Country: US (occurrence: None)
  Receive Date: 20221122
  Receipt Date: 20221122
  Transmission Date: 20230113
  Serious: Yes (Disabling)
  Sender: FDA-Public Use
  Company Number: None

PATIENT
  Age: 55 Year
  Sex: Female
  Weight: 61.69 kg

DRUGS (9)
  1. LIOTHYRONINE [Suspect]
     Active Substance: LIOTHYRONINE
     Indication: Hypothyroidism
     Dosage: OTHER FREQUENCY : MORNING;?
     Route: 048
     Dates: start: 20221101, end: 20221121
  2. SYNTHROID [Concomitant]
     Active Substance: LEVOTHYROXINE SODIUM
  3. CYTOMEL [Concomitant]
     Active Substance: LIOTHYRONINE SODIUM
  4. VITAMIN D3 [Concomitant]
     Active Substance: CHOLECALCIFEROL
  5. ZINC [Concomitant]
     Active Substance: ZINC
  6. QUERCETIN [Concomitant]
     Active Substance: QUERCETIN
  7. FISH OIL [Concomitant]
     Active Substance: FISH OIL
  8. VITAMIN C [Concomitant]
     Active Substance: ASCORBIC ACID
  9. SELENIUM [Concomitant]
     Active Substance: SELENIUM

REACTIONS (5)
  - Nausea [None]
  - Headache [None]
  - Alopecia [None]
  - Fatigue [None]
  - Feeling cold [None]

NARRATIVE: CASE EVENT DATE: 20221105
